FAERS Safety Report 7293346-3 (Version None)
Quarter: 2011Q1

REPORT INFORMATION
  Report Type: 
  Country: None (occurrence: None)
  Receive Date: 20110210
  Receipt Date: 20110210
  Transmission Date: 20110831
  Serious: No
  Sender: FDA-Public Use
  Company Number: None

PATIENT
  Age: 63 Year
  Sex: Female
  Weight: 57.6068 kg

DRUGS (1)
  1. TERBINAFINE HCL 250 MG CAMBER PHARMACE [Suspect]
     Indication: ONYCHOMYCOSIS
     Dosage: 1 TABLET ONCE A DAY PO
     Route: 048
     Dates: start: 20100721, end: 20100901

REACTIONS (9)
  - NAUSEA [None]
  - FATIGUE [None]
  - DYSGEUSIA [None]
  - DIZZINESS [None]
  - INSOMNIA [None]
  - URTICARIA [None]
  - PRURITUS [None]
  - VOMITING [None]
  - TOXICITY TO VARIOUS AGENTS [None]
